FAERS Safety Report 13655349 (Version 1)
Quarter: 2017Q2

REPORT INFORMATION
  Report Type: Report from Study
  Country: US (occurrence: US)
  Receive Date: 20170615
  Receipt Date: 20170615
  Transmission Date: 20170830
  Serious: Yes (Hospitalization, Other)
  Sender: FDA-Public Use
  Company Number: US-AMGEN-USASL2017089264

PATIENT
  Age: 54 Year
  Sex: Male

DRUGS (2)
  1. ENBREL [Suspect]
     Active Substance: ETANERCEPT
     Dosage: UNK, Q2WK
     Route: 065
  2. ENBREL [Suspect]
     Active Substance: ETANERCEPT
     Indication: PSORIATIC ARTHROPATHY
     Dosage: UNK
     Route: 065

REACTIONS (8)
  - Clostridium difficile colitis [Unknown]
  - Off label use [Unknown]
  - Inflammatory bowel disease [Not Recovered/Not Resolved]
  - Psoriatic arthropathy [Unknown]
  - Gait disturbance [Recovered/Resolved]
  - Arthropathy [Recovered/Resolved]
  - Peripheral nerve decompression [Recovering/Resolving]
  - Productive cough [Recovered/Resolved]

NARRATIVE: CASE EVENT DATE: 201704
